FAERS Safety Report 5187355-8 (Version None)
Quarter: 2006Q4

REPORT INFORMATION
  Report Type: 
  Country: None (occurrence: None)
  Receive Date: 20061220
  Receipt Date: 20060518
  Transmission Date: 20070319
  Serious: No
  Sender: FDA-Public Use
  Company Number: US-AMGEN-US180307

PATIENT
  Sex: Female
  Weight: 135.3 kg

DRUGS (6)
  1. ENBREL [Suspect]
     Indication: DRUG USE FOR UNKNOWN INDICATION
     Route: 058
  2. AVANDIA [Concomitant]
     Route: 065
  3. DIOVAN [Concomitant]
     Route: 065
  4. TRAZODONE HCL [Concomitant]
     Route: 065
  5. NAPROXEN [Concomitant]
     Route: 065
  6. METFORMIN [Concomitant]
     Route: 065
     Dates: start: 20040101

REACTIONS (1)
  - ANAEMIA [None]
